FAERS Safety Report 17458161 (Version 1)
Quarter: 2020Q1

REPORT INFORMATION
  Report Type: Spontaneous
  Country: US (occurrence: US)
  Receive Date: 20200225
  Receipt Date: 20200225
  Transmission Date: 20200409
  Serious: Yes (Life-Threatening, Hospitalization, Other)
  Sender: FDA-Public Use
  Company Number: US-PFIZER INC-2020080856

PATIENT
  Sex: Female

DRUGS (1)
  1. PROCARDIA [Suspect]
     Active Substance: NIFEDIPINE
     Indication: HYPERTENSION
     Dosage: UNK
     Dates: start: 2017, end: 201912

REACTIONS (18)
  - Pancreatic cyst [Unknown]
  - Ovarian cyst [Unknown]
  - Malaise [Recovered/Resolved]
  - Burning sensation [Unknown]
  - Blood potassium increased [Unknown]
  - Feeling hot [Unknown]
  - Off label use [Unknown]
  - Uterine leiomyoma [Unknown]
  - Pancreatic neoplasm [Unknown]
  - Hot flush [Unknown]
  - Eating disorder [Unknown]
  - Oedema [Unknown]
  - Renal cyst [Unknown]
  - Pigmentation disorder [Recovered/Resolved]
  - Drug ineffective for unapproved indication [Unknown]
  - Pruritus [Unknown]
  - Weight increased [Unknown]
  - Renal disorder [Unknown]
